FAERS Safety Report 12559624 (Version 1)
Quarter: 2016Q3

REPORT INFORMATION
  Report Type: Spontaneous
  Country: US (occurrence: None)
  Receive Date: 20160714
  Receipt Date: 20160714
  Transmission Date: 20161109
  Serious: No
  Sender: FDA-Public Use
  Company Number: None

PATIENT
  Age: 58 Year
  Sex: Male

DRUGS (1)
  1. VOTRIENT [Suspect]
     Active Substance: PAZOPANIB HYDROCHLORIDE
     Indication: NEOPLASM MALIGNANT
     Route: 048
     Dates: start: 20160423

REACTIONS (6)
  - Diarrhoea [None]
  - Nausea [None]
  - Dizziness [None]
  - Fatigue [None]
  - Headache [None]
  - Heart rate abnormal [None]

NARRATIVE: CASE EVENT DATE: 201607
